FAERS Safety Report 26176842 (Version 1)
Quarter: 2025Q4

REPORT INFORMATION
  Report Type: Spontaneous
  Country: US (occurrence: US)
  Receive Date: 20251218
  Receipt Date: 20251218
  Transmission Date: 20260117
  Serious: Yes (Hospitalization)
  Sender: AVYXA HOLDINGS, LLC
  Company Number: US-AVYXA HOLDINGS, LLC-2025AVY000075

PATIENT
  Age: 70 Year
  Sex: Female

DRUGS (4)
  1. GEMCITABINE [Suspect]
     Active Substance: GEMCITABINE
     Indication: Adenocarcinoma pancreas
     Dosage: UNK
     Route: 065
  2. PACLITAXEL [Concomitant]
     Active Substance: PACLITAXEL
     Indication: Adenocarcinoma pancreas
     Dosage: UNK
     Route: 065
  3. CISPLATIN [Concomitant]
     Active Substance: CISPLATIN
     Indication: Adenocarcinoma pancreas
     Dosage: 30 MILLILITRE PER SQUARE METRE
     Route: 065
  4. CISPLATIN [Concomitant]
     Active Substance: CISPLATIN
     Dosage: 20 MILLIGRAM/SQ. METER
     Route: 065

REACTIONS (1)
  - Immune-complex membranoproliferative glomerulonephritis [Recovering/Resolving]
